FAERS Safety Report 24826916 (Version 1)
Quarter: 2025Q1

REPORT INFORMATION
  Report Type: Spontaneous
  Country: US (occurrence: US)
  Receive Date: 20250109
  Receipt Date: 20250109
  Transmission Date: 20250409
  Serious: Yes (Death, Other)
  Sender: AMGEN
  Company Number: US-AMGEN-USASP2024256892

PATIENT
  Age: 57 Year
  Sex: Male

DRUGS (5)
  1. EPOETIN ALFA [Suspect]
     Active Substance: ERYTHROPOIETIN
     Indication: Anaemia
     Route: 065
  2. FILGRASTIM [Suspect]
     Active Substance: FILGRASTIM
     Indication: Neutropenia
     Route: 065
  3. OPRELVEKIN [Suspect]
     Active Substance: OPRELVEKIN
     Indication: Neutropenia
     Route: 058
  4. GRANULOCYTE-MACROPHAGE COLONY-STIMULATING FACTOR [Suspect]
     Active Substance: GRANULOCYTE-MACROPHAGE COLONY-STIMULATING FACTOR
     Indication: Neutropenia
     Route: 065
  5. FLUDARABINE PHOSPHATE [Suspect]
     Active Substance: FLUDARABINE PHOSPHATE
     Indication: Neutropenia
     Dosage: 25 MILLIGRAM/SQ. METER, QD, FOR 5 DAYS
     Route: 065
     Dates: end: 199811

REACTIONS (3)
  - Respiratory tract infection [Fatal]
  - Treatment failure [Recovered/Resolved]
  - Refusal of treatment by patient [Unknown]
